FAERS Safety Report 6036252-4 (Version None)
Quarter: 2009Q1

REPORT INFORMATION
  Report Type: 
  Country: None (occurrence: None)
  Receive Date: 20090113
  Receipt Date: 20090106
  Transmission Date: 20090719
  Serious: Yes (Hospitalization)
  Sender: FDA-Public Use
  Company Number: DE-ABBOTT-08P-062-0492280-00

PATIENT
  Sex: Male

DRUGS (7)
  1. HUMIRA [Suspect]
     Indication: PSORIATIC ARTHROPATHY
     Route: 058
     Dates: start: 20080714
  2. RAMIPRIL BETA [Concomitant]
     Indication: HYPERTENSION
  3. IBUPROFEN TABLETS [Concomitant]
     Indication: PAIN
  4. OMEP [Concomitant]
     Indication: PROPHYLAXIS AGAINST GASTROINTESTINAL ULCER
  5. ANALGESICS [Concomitant]
     Indication: PAIN
  6. ANALGESICS [Concomitant]
     Indication: PLEURISY
  7. ANALGESICS [Concomitant]
     Indication: PERICARDITIS

REACTIONS (2)
  - PERICARDITIS [None]
  - PLEURISY [None]
